FAERS Safety Report 16255893 (Version 1)
Quarter: 2019Q2

REPORT INFORMATION
  Report Type: Spontaneous
  Country: US (occurrence: US)
  Receive Date: 20190430
  Receipt Date: 20190430
  Transmission Date: 20190711
  Serious: No
  Sender: FDA-Public Use
  Company Number: US-PFIZER INC-2019177301

PATIENT
  Sex: Female

DRUGS (1)
  1. LYRICA [Suspect]
     Active Substance: PREGABALIN
     Indication: TARSAL TUNNEL SYNDROME
     Dosage: 75 MG, 2X/DAY
     Dates: start: 20190306

REACTIONS (3)
  - Intentional product misuse [Unknown]
  - Swelling [Unknown]
  - Product use in unapproved indication [Unknown]
